FAERS Safety Report 4687212-7 (Version None)
Quarter: 2005Q2

REPORT INFORMATION
  Report Type: 
  Country: None (occurrence: None)
  Receive Date: 20050610
  Receipt Date: 20050531
  Transmission Date: 20051028
  Serious: Yes (Other)
  Sender: FDA-Public Use
  Company Number: PHHO2005BR08711

PATIENT
  Age: 60 Year
  Sex: Female
  Weight: 54 kg

DRUGS (5)
  1. DIOVAN AMLO [Suspect]
     Indication: HYPERTENSION
     Dosage: 160 + 5 MG, QD
     Route: 048
     Dates: start: 20050529, end: 20050531
  2. ARAVA [Concomitant]
     Dosage: 20 MG, UNK
  3. METICORTEN [Concomitant]
  4. SCAFLAN [Concomitant]
     Dosage: UNK, Q12H
  5. FOSAMAX [Concomitant]
     Dosage: 70 MG, QD

REACTIONS (2)
  - ERYTHEMA [None]
  - HEADACHE [None]
